FAERS Safety Report 4426877-1 (Version None)
Quarter: 2004Q3

REPORT INFORMATION
  Report Type: 
  Country: None (occurrence: None)
  Receive Date: 20040811
  Receipt Date: 20040723
  Transmission Date: 20050211
  Serious: Yes (Hospitalization)
  Sender: FDA-Public Use
  Company Number: FR_040704500

PATIENT
  Age: 54 Year
  Sex: Male
  Weight: 76 kg

DRUGS (3)
  1. ZYPREXA [Suspect]
     Dosage: 20 MG/1 DAY
     Dates: start: 20040416, end: 20040510
  2. TERCIAN (CYAMEMAZINE) [Concomitant]
  3. THERALENE (ALIMEMAZINE TARTRATE) [Concomitant]

REACTIONS (6)
  - CIRCADIAN RHYTHM SLEEP DISORDER [None]
  - CONFUSIONAL STATE [None]
  - DISORIENTATION [None]
  - HALLUCINATION, VISUAL [None]
  - HYPERGLYCAEMIA [None]
  - HYPOMANIA [None]
